FAERS Safety Report 14735562 (Version 1)
Quarter: 2018Q2

REPORT INFORMATION
  Report Type: Spontaneous
  Country: US (occurrence: US)
  Receive Date: 20180409
  Receipt Date: 20180409
  Transmission Date: 20180711
  Serious: Yes (Hospitalization, Other)
  Sender: FDA-Public Use
  Company Number: US-MYLANLABS-2018M1022069

PATIENT
  Age: 5 Decade
  Sex: Male

DRUGS (5)
  1. TIGECYCLINE. [Concomitant]
     Active Substance: TIGECYCLINE
     Indication: KLEBSIELLA INFECTION
     Dosage: HOSPITAL DAY 24-60
     Route: 065
  2. AVIBACTAM W/CEFTAZIDIME [Suspect]
     Active Substance: AVIBACTAM SODIUM\CEFTAZIDIME
     Indication: KLEBSIELLA INFECTION
     Dosage: INITIAL DOSE UNKNOWN, WHICH WAS LATER INCREASED
     Route: 065
  3. AVIBACTAM W/CEFTAZIDIME [Suspect]
     Active Substance: AVIBACTAM SODIUM\CEFTAZIDIME
     Dosage: DOSE INCREASED
     Route: 065
  4. MEROPENEM. [Suspect]
     Active Substance: MEROPENEM
     Indication: EVIDENCE BASED TREATMENT
     Dosage: HOSPITAL DAY 5-38 AND AGAIN DAY 60-72
     Route: 065
  5. POLYMYXIN B. [Suspect]
     Active Substance: POLYMYXIN B
     Indication: KLEBSIELLA INFECTION
     Dosage: HOSPITAL DAY 7-36 AND AGAIN DAY 60-72
     Route: 065

REACTIONS (5)
  - Continuous haemodiafiltration [None]
  - Gene mutation [None]
  - Klebsiella test positive [None]
  - Nephropathy toxic [Unknown]
  - Pathogen resistance [Unknown]
